FAERS Safety Report 8701670 (Version 2)
Quarter: 2012Q4

REPORT INFORMATION
  Report Type: Report from Study
  Country: US (occurrence: US)
  Receive Date: 20120803
  Receipt Date: 20120904
  Transmission Date: 20130627
  Serious: Yes (Death, Life-Threatening, Hospitalization)
  Sender: FDA-Public Use
  Company Number: US-MSD-1207USA011405

PATIENT
  Age: 67 Year
  Sex: Male
  Weight: 89 kg

DRUGS (14)
  1. ZETIA [Suspect]
     Indication: HYPERLIPIDAEMIA
     Dosage: 10 mg, qd
     Route: 048
     Dates: end: 20111105
  2. ZOCOR [Suspect]
     Indication: HYPERLIPIDAEMIA
     Dosage: 40 mg, qd
     Route: 048
     Dates: end: 20111105
  3. CRIZOTINIB [Suspect]
     Indication: NON-SMALL CELL LUNG CANCER
     Dosage: 250 mg, bid
     Route: 048
     Dates: start: 20110603, end: 20111024
  4. LEVOTHYROXINE SODIUM [Suspect]
     Indication: HYPOTHYROIDISM
     Dosage: 50 Microgram, qd
     Route: 048
     Dates: end: 20111105
  5. BENZONATATE [Suspect]
     Indication: COUGH
     Dosage: 100 mg, prn
     Route: 048
     Dates: end: 20111105
  6. ASPIRIN [Suspect]
     Indication: CORONARY ARTERY DISEASE
     Dosage: 80 mg, qd
     Route: 048
     Dates: end: 20111105
  7. POTASSIUM CHLORIDE [Suspect]
     Indication: MEDICAL DIET
     Dosage: 20 mEq, qd
     Route: 048
     Dates: end: 20111105
  8. COREG [Suspect]
     Indication: HYPERTENSION
     Dosage: 3.125 mg, qd
     Route: 048
     Dates: end: 20111010
  9. LASIX (FUROSEMIDE) [Suspect]
     Indication: HYPERTENSION
     Dosage: UNK
     Route: 048
     Dates: start: 20111025, end: 20111105
  10. INFLUENZA VIRUS VACCINE NOS [Suspect]
     Indication: PROPHYLAXIS
     Dates: start: 20111005, end: 20111005
  11. VANCOMYCIN HYDROCHLORIDE [Suspect]
     Dosage: 1750 mg, Once
     Route: 042
     Dates: start: 20111015, end: 20111015
  12. VANCOMYCIN HYDROCHLORIDE [Suspect]
     Dosage: 1500 mg, bid
     Dates: start: 20111015, end: 20111016
  13. LEVOFLOXACIN [Suspect]
     Dosage: 750 mg/D5W 150
     Route: 042
     Dates: start: 20111015, end: 20111018
  14. MEROPENEM [Suspect]
     Dosage: 1 gram in 50ml
     Dates: start: 20111015, end: 20111019

REACTIONS (6)
  - Orthostatic hypotension [Recovering/Resolving]
  - Ileus [Recovering/Resolving]
  - Constipation [Recovering/Resolving]
  - Failure to thrive [Unknown]
  - Disease progression [Fatal]
  - Non-small cell lung cancer [Fatal]
